FAERS Safety Report 20700455 (Version 1)
Quarter: 2022Q2

REPORT INFORMATION
  Report Type: Spontaneous
  Country: US (occurrence: None)
  Receive Date: 20220410
  Receipt Date: 20220410
  Transmission Date: 20220721
  Serious: No
  Sender: FDA-Public Use
  Company Number: None

PATIENT
  Sex: Male

DRUGS (15)
  1. GLEOSTINE [Suspect]
     Active Substance: LOMUSTINE
     Indication: Brain neoplasm malignant
     Dosage: OTHER FREQUENCY : EVERY 6 WEEKS;?
     Route: 048
  2. ALLOPURINOL 100 mg tab [Concomitant]
  3. bactrim ds tab [Concomitant]
  4. decadron 4 mg tab [Concomitant]
  5. depakote 500 mg tab [Concomitant]
  6. diclofenac 1% cream [Concomitant]
  7. pepcid 20 mg tab [Concomitant]
  8. keppra 1000 mg tab [Concomitant]
  9. VITAMINS [Concomitant]
     Active Substance: VITAMINS
  10. prilosec 20 mg cap [Concomitant]
  11. zofran 4 mg tab [Concomitant]
  12. zocor 40 mg tab [Concomitant]
  13. stool softner tab [Concomitant]
  14. venlafaxine 75 mg tab [Concomitant]
  15. vitamin d3 25 mg tab [Concomitant]

REACTIONS (1)
  - Hospice care [None]
